FAERS Safety Report 9675040 (Version 2)
Quarter: 2013Q4

REPORT INFORMATION
  Report Type: Spontaneous
  Country: GB (occurrence: GB)
  Receive Date: 20131107
  Receipt Date: 20131107
  Transmission Date: 20140711
  Serious: Yes (Death, Other)
  Sender: FDA-Public Use
  Company Number: GB-DRREDDYS-GER/UKI/13/0030364

PATIENT
  Age: 80 Year
  Sex: Female
  Weight: 57 kg

DRUGS (3)
  1. ZOLEDRONIC ACID [Suspect]
     Indication: OSTEOPOROSIS
     Route: 042
     Dates: start: 20130531, end: 20130531
  2. STRONTIUM RANELATE [Concomitant]
     Indication: ARTHRITIS
  3. VITAMIN D [Concomitant]
     Indication: ARTHRITIS

REACTIONS (1)
  - Myocardial infarction [Fatal]
